FAERS Safety Report 10004216 (Version 1)
Quarter: 2014Q1

REPORT INFORMATION
  Report Type: Spontaneous
  Country: US (occurrence: US)
  Receive Date: 20140312
  Receipt Date: 20140312
  Transmission Date: 20141002
  Serious: No
  Sender: FDA-Public Use
  Company Number: US-009507513-2012SP022661

PATIENT
  Age: 6 Year
  Sex: Female
  Weight: 22.68 kg

DRUGS (2)
  1. CLARITIN CHEWABLE TABLETS [Suspect]
     Dosage: 10 MG, ONCE
     Route: 048
  2. CLARITIN CHEWABLE TABLETS [Suspect]
     Dosage: 10 MG, ONCE
     Route: 048

REACTIONS (1)
  - Overdose [Unknown]
